FAERS Safety Report 10237287 (Version 2)
Quarter: 2014Q2

REPORT INFORMATION
  Report Type: Spontaneous
  Country: DE (occurrence: DE)
  Receive Date: 20140613
  Receipt Date: 20140619
  Transmission Date: 20141212
  Serious: Yes (Other)
  Sender: FDA-Public Use
  Company Number: DE-GILEAD-2014-0105029

PATIENT
  Age: 52 Year
  Sex: Female
  Weight: 58 kg

DRUGS (5)
  1. SOVALDI [Suspect]
     Indication: CHRONIC HEPATITIS C
     Dosage: 400 MG, QD
     Route: 048
     Dates: start: 20140312
  2. RIBAVIRIN [Concomitant]
     Indication: CHRONIC HEPATITIS C
     Dosage: UNK
     Dates: start: 20140312
  3. SPIRONOLACTON [Concomitant]
     Indication: CHRONIC HEPATITIS C
     Dosage: UNK
     Dates: start: 20121212
  4. TORASEMID [Concomitant]
     Indication: CHRONIC HEPATITIS C
     Dosage: UNK
     Dates: start: 20121212
  5. SUBUTEX [Concomitant]
     Indication: DEPENDENCE
     Dosage: UNK
     Dates: start: 20110405

REACTIONS (3)
  - Pyelonephritis [Recovered/Resolved]
  - Pain in extremity [Recovered/Resolved]
  - Urinary tract infection [Recovered/Resolved]
